FAERS Safety Report 8084004-6 (Version None)
Quarter: 2012Q1

REPORT INFORMATION
  Report Type: 
  Country: None (occurrence: None)
  Receive Date: 20120128
  Receipt Date: 20110126
  Transmission Date: 20120608
  Serious: Yes (Other)
  Sender: FDA-Public Use
  Company Number: US-ABBOTT-11P-163-0701183-00

PATIENT
  Age: 40 Year
  Sex: Male

DRUGS (12)
  1. METHOTREXATE [Suspect]
  2. TRAMADOL HCL [Suspect]
     Dosage: EVERY 3-4 DAYS
     Dates: end: 20110120
  3. STEROID [Concomitant]
     Indication: PRODUCT USED FOR UNKNOWN INDICATION
  4. METHOTREXATE [Suspect]
  5. TRAMADOL HCL [Suspect]
     Indication: PAIN
     Dosage: IN THE EVENING
     Dates: start: 20110121, end: 20110121
  6. GABAPENTIN [Concomitant]
     Indication: PRODUCT USED FOR UNKNOWN INDICATION
  7. ALBUTEROL [Concomitant]
     Indication: PRODUCT USED FOR UNKNOWN INDICATION
  8. METHOTREXATE [Suspect]
     Indication: PRODUCT USED FOR UNKNOWN INDICATION
  9. HUMIRA [Suspect]
     Indication: PSORIATIC ARTHROPATHY
     Dates: start: 20080101, end: 20110109
  10. TRAMADOL HCL [Suspect]
     Dosage: IN THE MORNING
     Dates: start: 20110122
  11. FOLIC ACID [Concomitant]
     Indication: PRODUCT USED FOR UNKNOWN INDICATION
     Dosage: IN THE MORNING
  12. ASPIRIN [Concomitant]
     Indication: PRODUCT USED FOR UNKNOWN INDICATION
     Dates: start: 20110123

REACTIONS (14)
  - CERVICAL VERTEBRAL FRACTURE [None]
  - MUSCULOSKELETAL STIFFNESS [None]
  - INFLUENZA LIKE ILLNESS [None]
  - VERTIGO [None]
  - OROPHARYNGEAL PAIN [None]
  - HYPERSENSITIVITY [None]
  - HEART RATE INCREASED [None]
  - EAR PAIN [None]
  - LIVER FUNCTION TEST ABNORMAL [None]
  - ELECTROCARDIOGRAM ABNORMAL [None]
  - NECK PAIN [None]
  - IRRITABILITY [None]
  - ROAD TRAFFIC ACCIDENT [None]
  - NASAL CONGESTION [None]
